FAERS Safety Report 9314983 (Version 2)
Quarter: 2013Q3

REPORT INFORMATION
  Report Type: Spontaneous
  Country: US (occurrence: US)
  Receive Date: 20130529
  Receipt Date: 20130911
  Transmission Date: 20140515
  Serious: Yes (Other)
  Sender: FDA-Public Use
  Company Number: US-GLAXOSMITHKLINE-A1024904A

PATIENT
  Age: 80 Year
  Sex: Female

DRUGS (1)
  1. TYKERB [Suspect]
     Indication: PRODUCT USED FOR UNKNOWN INDICATION
     Dosage: 250MG UNKNOWN
     Dates: start: 20120621, end: 20130510

REACTIONS (5)
  - Neoplasm malignant [Unknown]
  - Hip arthroplasty [Unknown]
  - Malaise [Unknown]
  - Blister [Unknown]
  - Fatigue [Unknown]
